FAERS Safety Report 4678820-8 (Version None)
Quarter: 2005Q2

REPORT INFORMATION
  Report Type: 
  Country: None (occurrence: None)
  Receive Date: 20050531
  Receipt Date: 20050516
  Transmission Date: 20051028
  Serious: Yes (Hospitalization, Other)
  Sender: FDA-Public Use
  Company Number: 2005067549

PATIENT
  Sex: Male
  Weight: 63.5036 kg

DRUGS (9)
  1. XANAX [Suspect]
     Indication: MENTAL DISORDER
     Dosage: 4 MG (0.5 MG, 3 IN 1 D), ORAL
     Route: 048
     Dates: start: 20020309, end: 20030306
  2. NEURONTIN [Suspect]
     Indication: MENTAL DISORDER
     Dosage: (3 IN 1 D), ORAL
     Route: 048
  3. GEODON [Suspect]
     Indication: MOOD SWINGS
     Dosage: ORAL
     Dates: start: 20050101
  4. NYQUIL (DEXTROMETHORPHAN HYDROBROMIDE, DOXYLAMINE SUCCINATE, EPHEDRINE [Suspect]
     Indication: ILL-DEFINED DISORDER
  5. ALL OTHER NON-THERAPEUTIC PRODUCTS (ALL OTHER NON-THERAPEUTIC PRODUCTS [Suspect]
     Indication: ILL-DEFINED DISORDER
  6. ADDERALL 10 [Concomitant]
  7. PROZAC [Concomitant]
  8. AMBIEN [Concomitant]
  9. SOMA [Concomitant]

REACTIONS (12)
  - ANGER [None]
  - ANXIETY DISORDER [None]
  - DIET REFUSAL [None]
  - DISTURBANCE IN SOCIAL BEHAVIOUR [None]
  - DRUG DEPENDENCE [None]
  - DRUG WITHDRAWAL SYNDROME [None]
  - INTENTIONAL MISUSE [None]
  - OVERDOSE [None]
  - PHOBIA [None]
  - PSYCHOTIC DISORDER [None]
  - SELF-MEDICATION [None]
  - TREATMENT NONCOMPLIANCE [None]
